FAERS Safety Report 4740680-4 (Version None)
Quarter: 2005Q3

REPORT INFORMATION
  Report Type: 
  Country: None (occurrence: None)
  Receive Date: 20050810
  Receipt Date: 20031218
  Transmission Date: 20060218
  Serious: Yes (Hospitalization, Other)
  Sender: FDA-Public Use
  Company Number: US-GLAXOSMITHKLINE-A0494751A

PATIENT
  Sex: Male
  Weight: 120.5 kg

DRUGS (3)
  1. PAXIL [Suspect]
     Indication: PARANOID PERSONALITY DISORDER
     Dosage: 20MG PER DAY
     Route: 048
     Dates: start: 19950323
  2. KLONOPIN [Concomitant]
  3. ZYPREXA [Concomitant]

REACTIONS (8)
  - AGITATION [None]
  - DECREASED APPETITE [None]
  - DRUG WITHDRAWAL SYNDROME [None]
  - HEADACHE [None]
  - INSOMNIA [None]
  - NAUSEA [None]
  - SUICIDAL IDEATION [None]
  - WEIGHT INCREASED [None]
